FAERS Safety Report 15774141 (Version 2)
Quarter: 2019Q1

REPORT INFORMATION
  Report Type: Spontaneous
  Country: US (occurrence: US)
  Receive Date: 20181229
  Receipt Date: 20190123
  Transmission Date: 20190417
  Serious: Yes (Other)
  Sender: FDA-Public Use
  Company Number: US-AMGEN-USASP2018184275

PATIENT
  Age: 50 Year
  Sex: Female
  Weight: 98.41 kg

DRUGS (1)
  1. REPATHA [Suspect]
     Active Substance: EVOLOCUMAB
     Indication: PRODUCT USED FOR UNKNOWN INDICATION
     Dosage: 140 MG/ML, Q2WK
     Route: 065
     Dates: start: 2018

REACTIONS (9)
  - Spinal column injury [Not Recovered/Not Resolved]
  - Injury associated with device [Unknown]
  - Device issue [Recovered/Resolved]
  - Wrong technique in product usage process [Unknown]
  - Accidental exposure to product [Unknown]
  - Headache [Not Recovered/Not Resolved]
  - Cognitive disorder [Not Recovered/Not Resolved]
  - Road traffic accident [Unknown]
  - Memory impairment [Not Recovered/Not Resolved]

NARRATIVE: CASE EVENT DATE: 2018
